FAERS Safety Report 4737792-8 (Version None)
Quarter: 2005Q3

REPORT INFORMATION
  Report Type: 
  Country: None (occurrence: None)
  Receive Date: 20050805
  Receipt Date: 20050727
  Transmission Date: 20060218
  Serious: Yes (Other)
  Sender: FDA-Public Use
  Company Number: 200511849BCC

PATIENT
  Age: 80 Year
  Sex: Male
  Weight: 76.2043 kg

DRUGS (5)
  1. ALEVE [Suspect]
     Dosage: 440 MG, TOTAL DAILY, ORAL; 220 MG, QD ORAL
     Route: 048
     Dates: start: 20050420, end: 20050502
  2. ALEVE [Suspect]
     Dosage: 440 MG, TOTAL DAILY, ORAL; 220 MG, QD ORAL
     Route: 048
     Dates: start: 20050503
  3. MONOPRIL [Concomitant]
  4. DIGOXIN [Concomitant]
  5. PROSCAR [Concomitant]

REACTIONS (1)
  - BLOOD PRESSURE INCREASED [None]
